FAERS Safety Report 16134603 (Version 4)
Quarter: 2019Q2

REPORT INFORMATION
  Report Type: Spontaneous
  Country: US (occurrence: US)
  Receive Date: 20190329
  Receipt Date: 20190626
  Transmission Date: 20190711
  Serious: Yes (Other)
  Sender: FDA-Public Use
  Company Number: US-PFIZER INC-2019126206

PATIENT
  Age: 79 Year
  Sex: Female
  Weight: 57 kg

DRUGS (5)
  1. ADDERALL [Concomitant]
     Active Substance: AMPHETAMINE ASPARTATE\AMPHETAMINE SULFATE\DEXTROAMPHETAMINE SACCHARATE\DEXTROAMPHETAMINE SULFATE
     Dosage: UNK, 4X/DAY
  2. LYRICA [Suspect]
     Active Substance: PREGABALIN
     Indication: FIBROMYALGIA
     Dosage: UNK
     Route: 048
  3. LYRICA [Suspect]
     Active Substance: PREGABALIN
     Indication: ASTHENIA
  4. LYRICA [Suspect]
     Active Substance: PREGABALIN
     Indication: FATIGUE
  5. ADDERALL [Concomitant]
     Active Substance: AMPHETAMINE ASPARTATE\AMPHETAMINE SULFATE\DEXTROAMPHETAMINE SACCHARATE\DEXTROAMPHETAMINE SULFATE
     Indication: ASTHENIA
     Dosage: UNK, 3X/DAY

REACTIONS (12)
  - Malaise [Unknown]
  - Feeling abnormal [Unknown]
  - Drug resistance [Unknown]
  - Condition aggravated [Not Recovered/Not Resolved]
  - Gait disturbance [Not Recovered/Not Resolved]
  - Dysstasia [Unknown]
  - Pain [Unknown]
  - Fall [Not Recovered/Not Resolved]
  - Fear of falling [Unknown]
  - Mental impairment [Unknown]
  - Somnolence [Unknown]
  - Movement disorder [Unknown]
